FAERS Safety Report 9181474 (Version 2)
Quarter: 2013Q1

REPORT INFORMATION
  Report Type: Spontaneous
  Country: US (occurrence: US)
  Receive Date: 20130322
  Receipt Date: 20130327
  Transmission Date: 20140127
  Serious: Yes (Hospitalization)
  Sender: FDA-Public Use
  Company Number: US-JNJFOC-20130309466

PATIENT
  Sex: Male

DRUGS (8)
  1. STELARA [Suspect]
     Indication: PSORIASIS
     Route: 065
  2. STELARA [Suspect]
     Indication: PSORIASIS
     Route: 065
     Dates: start: 20130312
  3. STELARA [Suspect]
     Indication: PSORIASIS
     Route: 065
     Dates: start: 20130104
  4. XARELTO [Concomitant]
     Indication: ATRIAL FIBRILLATION
     Route: 065
  5. LISINOPRIL [Concomitant]
     Indication: BLOOD PRESSURE
     Route: 065
  6. ACID REFLUX MEDICATION [Concomitant]
     Route: 065
  7. ALLERGY MEDICATION [Concomitant]
     Route: 065
  8. ANTICOAGULANT [Concomitant]
     Route: 065

REACTIONS (1)
  - Thrombosis [Unknown]
